FAERS Safety Report 12810999 (Version 3)
Quarter: 2017Q4

REPORT INFORMATION
  Report Type: Report from Study
  Country: US (occurrence: US)
  Receive Date: 20161005
  Receipt Date: 20171106
  Transmission Date: 20180320
  Serious: Yes (Hospitalization)
  Sender: FDA-Public Use
  Company Number: US-BAYER-2016-186732

PATIENT
  Age: 63 Year
  Sex: Female
  Weight: 87.36 kg

DRUGS (17)
  1. ADDITIONAL STUDY MEDICATION [Suspect]
     Active Substance: UNSPECIFIED INGREDIENT
     Indication: BREAST CANCER
     Dosage: 10 MG, QD
     Route: 048
     Dates: start: 20160613, end: 20160922
  2. CALCIUM CARBONATE. [Concomitant]
     Active Substance: CALCIUM CARBONATE
     Dosage: 500 MG, BID
     Route: 048
     Dates: start: 20120924
  3. AMOXICILLIN. [Concomitant]
     Active Substance: AMOXICILLIN
     Indication: COUGH
     Dosage: 500 MG, BID
     Route: 048
     Dates: start: 20160806
  4. ONDASETRON [Concomitant]
     Active Substance: ONDANSETRON
     Indication: VOMITING
     Dosage: 8 MG, TID
     Route: 048
     Dates: start: 20160801
  5. POTASSIUM CHLORIDE. [Concomitant]
     Active Substance: POTASSIUM CHLORIDE
     Indication: HYPOKALAEMIA
     Dosage: 20 MEQ, QD
     Route: 048
     Dates: start: 20160812
  6. ADDITIONAL STUDY MEDICATION [Suspect]
     Active Substance: UNSPECIFIED INGREDIENT
     Indication: METASTASES TO BONE
  7. RADIUM-223 DICHLORIDE [Suspect]
     Active Substance: RADIUM RA-223 DICHLORIDE
     Indication: BREAST CANCER
     Dosage: UNK
     Route: 042
     Dates: start: 20160617, end: 20161101
  8. HYGROTON [Concomitant]
     Active Substance: CHLORTHALIDONE
     Indication: HYPERTENSION
     Dosage: 25 MG, QD
     Route: 048
     Dates: start: 20160804
  9. ADDITIONAL STUDY MEDICATION [Suspect]
     Active Substance: UNSPECIFIED INGREDIENT
     Indication: METASTASES TO BONE
  10. ADDITIONAL STUDY MEDICATION [Suspect]
     Active Substance: UNSPECIFIED INGREDIENT
     Indication: BREAST CANCER
     Dosage: 40 MG, QD
     Route: 048
     Dates: start: 20160613
  11. LEVOTHYROXINE. [Concomitant]
     Active Substance: LEVOTHYROXINE
     Indication: HYPOTHYROIDISM
     Dosage: 50 MEQ, QD
     Route: 048
     Dates: start: 20120924
  12. POTASSIUM CHLORIDE. [Concomitant]
     Active Substance: POTASSIUM CHLORIDE
     Indication: HYPOKALAEMIA
     Dosage: 40 MEQ, ONCE
     Route: 042
     Dates: start: 20160812, end: 20160812
  13. NORVASC [Concomitant]
     Active Substance: AMLODIPINE BESYLATE
     Indication: HYPERTENSION
     Dosage: 5 MG, QD
     Route: 048
     Dates: start: 20160613, end: 20160804
  14. PRAVASTATIN. [Concomitant]
     Active Substance: PRAVASTATIN
     Indication: HYPERLIPIDAEMIA
     Dosage: 40 MG, QD
     Route: 048
     Dates: start: 20140623
  15. LISINOPRIL. [Concomitant]
     Active Substance: LISINOPRIL
     Indication: HYPERTENSION
     Dosage: 30 MG, QD
     Route: 048
     Dates: start: 20140624
  16. DENOSUMAB [Concomitant]
     Active Substance: DENOSUMAB
     Dosage: 120 MG, Q1MON
     Route: 058
     Dates: start: 20130701
  17. RADIUM-223 DICHLORIDE [Suspect]
     Active Substance: RADIUM RA-223 DICHLORIDE
     Indication: METASTASES TO BONE

REACTIONS (1)
  - Pneumonitis [Recovered/Resolved]

NARRATIVE: CASE EVENT DATE: 20160922
